FAERS Safety Report 23677878 (Version 5)
Quarter: 2024Q4

REPORT INFORMATION
  Report Type: Spontaneous
  Country: US (occurrence: US)
  Receive Date: 20240327
  Receipt Date: 20241029
  Transmission Date: 20250114
  Serious: Yes (Death, Hospitalization, Other)
  Sender: SANOFI AVENTIS
  Company Number: US-SA-SAC20240326001110

PATIENT
  Age: 63 Year
  Sex: Female

DRUGS (1)
  1. DUPIXENT [Suspect]
     Active Substance: DUPILUMAB
     Indication: Asthma
     Dosage: 300 MG, QOW
     Route: 058

REACTIONS (14)
  - Pulmonary oedema [Unknown]
  - Cardiac failure congestive [Unknown]
  - Chronic obstructive pulmonary disease [Unknown]
  - Neoplasm malignant [Unknown]
  - Hospitalisation [Unknown]
  - Death [Fatal]
  - Nodule [Unknown]
  - Burning sensation [Unknown]
  - Blood immunoglobulin E abnormal [Recovering/Resolving]
  - Respiration abnormal [Recovering/Resolving]
  - Renal mass [Unknown]
  - Injection site rash [Unknown]
  - Injection site pain [Unknown]
  - Rash [Unknown]
